FAERS Safety Report 20133166 (Version 2)
Quarter: 2022Q1

REPORT INFORMATION
  Report Type: Report from Study
  Country: BR (occurrence: BR)
  Receive Date: 20211201
  Receipt Date: 20220106
  Transmission Date: 20220423
  Serious: Yes (Other)
  Sender: FDA-Public Use
  Company Number: BR-NOVARTISPH-NVSC2021BR155358

PATIENT
  Sex: Male
  Weight: 102 kg

DRUGS (2)
  1. COSENTYX [Suspect]
     Active Substance: SECUKINUMAB
     Indication: Psoriatic arthropathy
     Dosage: 300 MG, QMO (2 PENS)
     Route: 065
     Dates: start: 20181025, end: 20210910
  2. COSENTYX [Suspect]
     Active Substance: SECUKINUMAB
     Dosage: 150 MG, QMO
     Route: 065
     Dates: start: 20210806

REACTIONS (13)
  - Haemorrhage [Recovered/Resolved]
  - Haemorrhage [Unknown]
  - Nervousness [Unknown]
  - Stress [Unknown]
  - Psoriasis [Not Recovered/Not Resolved]
  - Skin haemorrhage [Not Recovered/Not Resolved]
  - Skin lesion [Not Recovered/Not Resolved]
  - Wound [Recovered/Resolved]
  - Wound [Unknown]
  - Limb injury [Unknown]
  - Joint injury [Unknown]
  - Product availability issue [Unknown]
  - Inappropriate schedule of product administration [Unknown]

NARRATIVE: CASE EVENT DATE: 20210101
